FAERS Safety Report 11209410 (Version 3)
Quarter: 2015Q4

REPORT INFORMATION
  Report Type: Spontaneous
  Country: US (occurrence: US)
  Receive Date: 20150622
  Receipt Date: 20151008
  Transmission Date: 20160304
  Serious: Yes (Other)
  Sender: FDA-Public Use
  Company Number: US-GLAXOSMITHKLINE INC.-US2015GSK087972

PATIENT
  Age: 67 Year
  Sex: Female

DRUGS (2)
  1. VOTRIENT [Suspect]
     Active Substance: PAZOPANIB HYDROCHLORIDE
     Indication: RENAL CELL CARCINOMA
     Dosage: UNK, U
     Route: 065
     Dates: start: 201409, end: 20150612
  2. ASPIRIN (BABY) [Concomitant]
     Active Substance: ASPIRIN

REACTIONS (19)
  - Alopecia [Unknown]
  - Stomatitis [Unknown]
  - Diarrhoea [Unknown]
  - Flushing [Unknown]
  - Scab [Recovered/Resolved]
  - Dysgeusia [Unknown]
  - Thrombosis [Unknown]
  - Skin lesion [Recovered/Resolved]
  - Living in residential institution [Recovered/Resolved]
  - Retching [Unknown]
  - Wound haemorrhage [Unknown]
  - Adrenal gland cancer [Recovered/Resolved]
  - Incision site haemorrhage [Recovering/Resolving]
  - Malaise [Unknown]
  - Impaired healing [Unknown]
  - Adverse drug reaction [Unknown]
  - Adrenalectomy [Unknown]
  - Renal cancer metastatic [Recovered/Resolved]
  - Hair colour changes [Unknown]

NARRATIVE: CASE EVENT DATE: 20140911
